FAERS Safety Report 15647401 (Version 1)
Quarter: 2018Q4

REPORT INFORMATION
  Report Type: Spontaneous
  Country: US (occurrence: US)
  Receive Date: 20181122
  Receipt Date: 20181122
  Transmission Date: 20190205
  Serious: Yes (Life-Threatening, Other)
  Sender: FDA-Public Use
  Company Number: US-ABBVIE-18P-163-2561922-00

PATIENT
  Age: 11 Year
  Sex: Male

DRUGS (14)
  1. ONFI [Suspect]
     Active Substance: CLOBAZAM
     Dosage: 15.75 MG, BID
     Route: 048
     Dates: start: 20180321, end: 20180508
  2. BANZEL [Concomitant]
     Active Substance: RUFINAMIDE
     Indication: PRODUCT USED FOR UNKNOWN INDICATION
  3. ONFI [Suspect]
     Active Substance: CLOBAZAM
     Dosage: 15.75 MG,BID
     Route: 048
     Dates: start: 20170411, end: 20170822
  4. ONFI [Suspect]
     Active Substance: CLOBAZAM
     Dosage: 15.5 MG, BID
     Route: 048
     Dates: start: 20180321, end: 20180515
  5. LEVOCETIRIZINE [Concomitant]
     Active Substance: LEVOCETIRIZINE
     Indication: PRODUCT USED FOR UNKNOWN INDICATION
  6. ONFI [Suspect]
     Active Substance: CLOBAZAM
     Indication: EPILEPSY
     Dosage: 65 MG,BID
     Route: 048
  7. ONFI [Suspect]
     Active Substance: CLOBAZAM
     Dosage: 16 MG, QD, AM
     Route: 048
     Dates: start: 20170822, end: 20180306
  8. ONFI [Suspect]
     Active Substance: CLOBAZAM
     Dosage: 65 MG, UNK
     Route: 048
  9. ONFI [Suspect]
     Active Substance: CLOBAZAM
     Dosage: 16.25 MG, QD
     Route: 048
     Dates: start: 20170822, end: 20180306
  10. ONFI [Suspect]
     Active Substance: CLOBAZAM
     Dosage: 16.5 MG, BID
     Route: 048
  11. SODIUM BROMIDE [Concomitant]
     Active Substance: SODIUM BROMIDE
     Indication: PRODUCT USED FOR UNKNOWN INDICATION
  12. ONFI [Suspect]
     Active Substance: CLOBAZAM
     Dosage: 15.25 MG, BID
     Route: 048
     Dates: start: 20180515
  13. ONFI [Suspect]
     Active Substance: CLOBAZAM
     Dosage: 16.5 MG,BID
     Route: 048
     Dates: start: 20160719, end: 20170411
  14. DEPAKOTE [Suspect]
     Active Substance: DIVALPROEX SODIUM
     Indication: PRODUCT USED FOR UNKNOWN INDICATION
     Dosage: 250 MG, QID
     Route: 065
     Dates: end: 201802

REACTIONS (6)
  - Exfoliative rash [Unknown]
  - Drug dependence [Unknown]
  - Prescribed overdose [Unknown]
  - Status epilepticus [Recovering/Resolving]
  - Withdrawal syndrome [Unknown]
  - Product quality issue [Unknown]

NARRATIVE: CASE EVENT DATE: 20171016
